FAERS Safety Report 6090917-7 (Version None)
Quarter: 2009Q1

REPORT INFORMATION
  Report Type: 
  Country: None (occurrence: None)
  Receive Date: 20090220
  Receipt Date: 20090217
  Transmission Date: 20090719
  Serious: Yes (Hospitalization)
  Sender: FDA-Public Use
  Company Number: THQ2009A00746

PATIENT
  Age: 65 Year
  Sex: Male

DRUGS (1)
  1. ACTOS [Suspect]
     Dosage: PER ORAL
     Route: 048

REACTIONS (2)
  - CARDIAC FAILURE [None]
  - MYOCARDIAL ISCHAEMIA [None]
